FAERS Safety Report 22037114 (Version 1)
Quarter: 2023Q1

REPORT INFORMATION
  Report Type: Spontaneous
  Country: US (occurrence: None)
  Receive Date: 20230223
  Receipt Date: 20230223
  Transmission Date: 20230418
  Serious: No
  Sender: FDA-Public Use
  Company Number: None

PATIENT
  Sex: Male

DRUGS (1)
  1. NUCALA [Suspect]
     Active Substance: MEPOLIZUMAB
     Indication: Asthma
     Dosage: 100MG  EVERY 28 DAYS SQ?
     Route: 058
     Dates: start: 201910

REACTIONS (3)
  - Incorrect dose administered [None]
  - Asthma [None]
  - Device leakage [None]
